FAERS Safety Report 22291551 (Version 1)
Quarter: 2023Q2

REPORT INFORMATION
  Report Type: Spontaneous
  Country: AT (occurrence: AT)
  Receive Date: 20230506
  Receipt Date: 20230506
  Transmission Date: 20230722
  Serious: Yes (Other)
  Sender: FDA-Public Use
  Company Number: None

PATIENT
  Age: 17 Year
  Sex: Male

DRUGS (1)
  1. ACETAMINOPHEN [Suspect]
     Active Substance: ACETAMINOPHEN
     Indication: Headache
     Route: 042
     Dates: start: 20220302

REACTIONS (5)
  - Paraesthesia oral [None]
  - Chest pain [None]
  - Dyspnoea [None]
  - Type I hypersensitivity [None]
  - Urticaria [None]

NARRATIVE: CASE EVENT DATE: 20220302
